FAERS Safety Report 8487377-5 (Version None)
Quarter: 2012Q3

REPORT INFORMATION
  Report Type: 
  Country: None (occurrence: None)
  Receive Date: 20120705
  Receipt Date: 20120621
  Transmission Date: 20120928
  Serious: Yes (Hospitalization, Other)
  Sender: FDA-Public Use
  Company Number: US-ELI_LILLY_AND_COMPANY-US201204009188

PATIENT
  Age: 18 Year
  Sex: Male

DRUGS (7)
  1. STRATTERA [Suspect]
     Dosage: 50 MG, QD
     Route: 048
  2. STRATTERA [Suspect]
     Dosage: 100 MG, QD
  3. ADDERALL 5 [Concomitant]
  4. LEXAPRO [Concomitant]
     Dosage: 15 MG, QD
  5. STRATTERA [Suspect]
     Indication: ATTENTION DEFICIT/HYPERACTIVITY DISORDER
     Dosage: 25 MG, QD
     Route: 048
     Dates: start: 20120201
  6. STRATTERA [Suspect]
     Dosage: 80 MG, QD
     Route: 048
  7. STRATTERA [Suspect]
     Dosage: 75 MG, QD
     Route: 048

REACTIONS (9)
  - DRUG WITHDRAWAL SYNDROME [None]
  - AGGRESSION [None]
  - SUICIDAL IDEATION [None]
  - ANGER [None]
  - AGITATION [None]
  - HAND FRACTURE [None]
  - DRUG INEFFECTIVE [None]
  - DEPRESSION SUICIDAL [None]
  - CRYING [None]
